FAERS Safety Report 11193171 (Version 1)
Quarter: 2015Q2

REPORT INFORMATION
  Report Type: Spontaneous
  Country: ES (occurrence: ES)
  Receive Date: 20150616
  Receipt Date: 20150616
  Transmission Date: 20150821
  Serious: No
  Sender: FDA-Public Use
  Company Number: ES-JNJFOC-20140924242

PATIENT
  Age: 61 Year
  Sex: Male

DRUGS (3)
  1. ANAFRANIL [Concomitant]
     Active Substance: CLOMIPRAMINE HYDROCHLORIDE
     Route: 065
  2. HALCION [Concomitant]
     Active Substance: TRIAZOLAM
     Route: 065
  3. STELARA [Suspect]
     Active Substance: USTEKINUMAB
     Indication: PSORIASIS
     Route: 058
     Dates: start: 201402, end: 201505

REACTIONS (2)
  - Monoclonal gammopathy [Unknown]
  - Immunoglobulins increased [Not Recovered/Not Resolved]

NARRATIVE: CASE EVENT DATE: 201409
